FAERS Safety Report 4713046-0 (Version None)
Quarter: 2005Q3

REPORT INFORMATION
  Report Type: 
  Country: None (occurrence: None)
  Receive Date: 20050711
  Receipt Date: 20050505
  Transmission Date: 20060218
  Serious: Yes (Other)
  Sender: FDA-Public Use
  Company Number: 2005071596

PATIENT
  Age: 36 Year
  Sex: Male

DRUGS (3)
  1. BREXIN (PIROXICAM BETADEX) [Suspect]
     Indication: INFLAMMATION
     Dosage: 20 MG (1 IN 1 D), ORAL
     Route: 048
     Dates: start: 20050325, end: 20050402
  2. CLINDAMYCIN HYDROCHLORIDE [Suspect]
     Indication: ERYSIPELAS
     Dosage: 1800 MG (DAILY), ORAL
     Route: 048
     Dates: start: 20050325, end: 20050402
  3. ACETAMINOPHEN [Concomitant]

REACTIONS (3)
  - LARYNGEAL OEDEMA [None]
  - STEVENS-JOHNSON SYNDROME [None]
  - SWELLING FACE [None]
